FAERS Safety Report 7150041 (Version 5)
Quarter: 2012Q4

REPORT INFORMATION
  Report Type: 
  Country: SE (occurrence: SE)
  Receive Date: 20091015
  Receipt Date: 20121016
  Transmission Date: 20130627
  Serious: Yes (Other)
  Sender: FDA-Public Use
  Company Number: SE-PFIZER INC-2009278117

PATIENT
  Age: 49 Year
  Sex: Female

DRUGS (4)
  1. LYRICA [Suspect]
     Indication: PAIN
     Dosage: 75 mg, 2x/day
     Dates: start: 20090122, end: 20090917
  2. LYRICA [Suspect]
     Indication: GENERALISED ANXIETY DISORDER
  3. SUMATRIPTAN [Concomitant]
     Indication: MIGRAINE
     Dosage: UNK
  4. DICLOFENAC [Concomitant]
     Indication: MIGRAINE
     Dosage: UNK

REACTIONS (8)
  - Hallucination [Not Recovered/Not Resolved]
  - Syncope [Recovering/Resolving]
  - Palpitations [Recovering/Resolving]
  - Nightmare [Not Recovered/Not Resolved]
  - Heart rate abnormal [Unknown]
  - Weight decreased [Not Recovered/Not Resolved]
  - Daydreaming [Not Recovered/Not Resolved]
  - Abnormal dreams [Not Recovered/Not Resolved]
